FAERS Safety Report 9181923 (Version 2)
Quarter: 2013Q2

REPORT INFORMATION
  Report Type: Spontaneous
  Country: US (occurrence: US)
  Receive Date: 20130322
  Receipt Date: 20130411
  Transmission Date: 20140414
  Serious: Yes (Other)
  Sender: FDA-Public Use
  Company Number: US-009507513-1303USA010980

PATIENT
  Sex: 0

DRUGS (2)
  1. VICTRELIS [Suspect]
     Route: 048
  2. PEGASYS [Suspect]

REACTIONS (1)
  - Liver transplant [Unknown]
